FAERS Safety Report 10889606 (Version 1)
Quarter: 2015Q1

REPORT INFORMATION
  Report Type: Spontaneous
  Country: US (occurrence: US)
  Receive Date: 20150305
  Receipt Date: 20150305
  Transmission Date: 20150721
  Serious: No
  Sender: FDA-Public Use
  Company Number: US-GLAXOSMITHKLINE-US2015GSK027607

PATIENT
  Sex: Female
  Weight: 60.77 kg

DRUGS (1)
  1. TYKERB [Suspect]
     Active Substance: LAPATINIB DITOSYLATE
     Indication: BRAIN NEOPLASM
     Dosage: 1250 MG, QD
     Dates: start: 20120806

REACTIONS (2)
  - Dry skin [Unknown]
  - Nail disorder [Unknown]
